FAERS Safety Report 12473759 (Version 1)
Quarter: 2016Q2

REPORT INFORMATION
  Report Type: Spontaneous
  Country: BR (occurrence: BR)
  Receive Date: 20160616
  Receipt Date: 20160616
  Transmission Date: 20160815
  Serious: Yes (Other)
  Sender: FDA-Public Use
  Company Number: PHHY2016BR081232

PATIENT
  Age: 2 Month
  Sex: Male

DRUGS (1)
  1. DESOGESTREL [Suspect]
     Active Substance: DESOGESTREL
     Indication: EXPOSURE DURING BREAST FEEDING
     Dosage: MATERNAL DOSE: 75 UG, QD
     Route: 063

REACTIONS (2)
  - Exposure during breast feeding [Unknown]
  - Haematochezia [Unknown]
